FAERS Safety Report 9371010 (Version 2)
Quarter: 2013Q3

REPORT INFORMATION
  Report Type: Spontaneous
  Country: AU (occurrence: AU)
  Receive Date: 20130627
  Receipt Date: 20130704
  Transmission Date: 20140515
  Serious: No
  Sender: FDA-Public Use
  Company Number: AU-ROCHE-1242133

PATIENT
  Age: 47 Year
  Sex: Female
  Weight: 101 kg

DRUGS (5)
  1. MIRCERA [Suspect]
     Indication: PRODUCT USED FOR UNKNOWN INDICATION
     Dosage: DOSE REDUCED
     Route: 042
     Dates: start: 20130125, end: 20130621
  2. MIRCERA [Suspect]
     Route: 042
     Dates: start: 201211, end: 201301
  3. ATENOLOL [Concomitant]
     Route: 048
     Dates: start: 20120727
  4. GLICLAZIDE [Concomitant]
     Route: 048
  5. CRESTOR [Concomitant]
     Route: 048

REACTIONS (1)
  - Haemoglobin increased [Unknown]
